FAERS Safety Report 7481565-2 (Version None)
Quarter: 2011Q2

REPORT INFORMATION
  Report Type: 
  Country: None (occurrence: None)
  Receive Date: 20110516
  Receipt Date: 20110510
  Transmission Date: 20111010
  Serious: Yes (Death, Life-Threatening, Hospitalization)
  Sender: FDA-Public Use
  Company Number: GB-NAPPMUNDI-GBR-2011-0007987

PATIENT
  Age: 65 Year
  Sex: Male

DRUGS (11)
  1. APREPITANT [Suspect]
     Indication: PRODUCT USED FOR UNKNOWN INDICATION
     Dosage: 4 UNK, UNK
     Route: 042
     Dates: start: 20110225, end: 20110225
  2. CISPLATIN [Suspect]
     Indication: PRODUCT USED FOR UNKNOWN INDICATION
     Dosage: UNK
     Route: 042
     Dates: start: 20101221, end: 20110225
  3. CYCLIZINE [Concomitant]
  4. DALTEPARIN SODIUM [Suspect]
     Indication: LUNG NEOPLASM MALIGNANT
     Dosage: UNK
     Route: 065
     Dates: start: 20101220, end: 20110225
  5. PIPERACILLIN [Concomitant]
     Indication: C-REACTIVE PROTEIN INCREASED
     Route: 065
  6. DIAMORPHINE [Concomitant]
     Route: 042
  7. ONDANSETRON [Suspect]
     Dosage: 8 MG, UNK
     Route: 048
  8. PEMETREXED DISODIUM [Suspect]
     Indication: PRODUCT USED FOR UNKNOWN INDICATION
     Dosage: UNK
     Route: 042
     Dates: start: 20101221, end: 20110225
  9. ACETAMINOPHEN [Concomitant]
     Route: 048
  10. MORPHINE SULDATE [Suspect]
     Indication: PRODUCT USED FOR UNKNOWN INDICATION
     Dosage: 30 MG, UNK
     Route: 048
  11. DEXAMETHASONE [Suspect]
     Indication: PRODUCT USED FOR UNKNOWN INDICATION
     Dosage: 4 MG, UNK
     Route: 048
     Dates: start: 20110225, end: 20110225

REACTIONS (6)
  - PERITONITIS [None]
  - LARGE INTESTINE PERFORATION [None]
  - NAUSEA [None]
  - CONSTIPATION [None]
  - ABDOMINAL PAIN [None]
  - LUNG CANCER METASTATIC [None]
